FAERS Safety Report 10787499 (Version 1)
Quarter: 2015Q1

REPORT INFORMATION
  Report Type: Other
  Country: GB (occurrence: GB)
  Receive Date: 20150212
  Receipt Date: 20150212
  Transmission Date: 20150721
  Serious: Yes (Hospitalization, Other)
  Sender: FDA-Public Use
  Company Number: GB-SUN PHARMACEUTICAL INDUSTRIES LTD-2015SUN00359

PATIENT

DRUGS (7)
  1. BISOPROLOL [Concomitant]
     Active Substance: BISOPROLOL
  2. COLCHICINE. [Concomitant]
     Active Substance: COLCHICINE
  3. ASPIRIN. [Concomitant]
     Active Substance: ASPIRIN
  4. METFORMIN [Concomitant]
     Active Substance: METFORMIN HYDROCHLORIDE
  5. OCTREOTIDE 100MICROGRAM / ML SOLUTION FOR INJECTION [Suspect]
     Active Substance: OCTREOTIDE
     Indication: PERICARDIAL EFFUSION
     Dosage: 100 ?G, TID
     Route: 065
     Dates: start: 20150116, end: 20150119
  6. FUROSEMIDE. [Concomitant]
     Active Substance: FUROSEMIDE
  7. OMEPRAZOLE. [Concomitant]
     Active Substance: OMEPRAZOLE

REACTIONS (4)
  - Headache [Unknown]
  - Product use issue [Unknown]
  - Restless legs syndrome [Unknown]
  - Rash [Unknown]
